FAERS Safety Report 4978366-3 (Version None)
Quarter: 2006Q1

REPORT INFORMATION
  Report Type: 
  Country: None (occurrence: None)
  Receive Date: 20060217
  Receipt Date: 20041220
  Transmission Date: 20060701
  Serious: Yes (Other)
  Sender: FDA-Public Use
  Company Number: 384194

PATIENT
  Sex: Female

DRUGS (3)
  1. TORADOL [Suspect]
     Indication: FIBROMYALGIA
     Dosage: 1 DOSE FORM DAILY
  2. TORADOL [Suspect]
     Indication: HEADACHE
     Dosage: 1 DOSE FORM DAILY
  3. NASOCORT (TRIAMCINOLONE ACETONIDE) [Concomitant]

REACTIONS (1)
  - ANAPHYLACTIC REACTION [None]
